FAERS Safety Report 14210897 (Version 1)
Quarter: 2017Q4

REPORT INFORMATION
  Report Type: Spontaneous
  Country: US (occurrence: US)
  Receive Date: 20171121
  Receipt Date: 20171121
  Transmission Date: 20180321
  Serious: No
  Sender: FDA-Public Use
  Company Number: US-BAUSCH-BL-2017-019738

PATIENT
  Age: 82 Year
  Sex: Female
  Weight: 56.3 kg

DRUGS (4)
  1. ARTIFICIAL TEARS [Concomitant]
     Active Substance: GLYCERIN\HYPROMELLOSES\POLYETHYLENE GLYCOL 400
     Indication: DRY EYE
     Dosage: DROPS
  2. LOTEMAX [Suspect]
     Active Substance: LOTEPREDNOL ETABONATE
     Dosage: ONE DROP IN EACH EYE ONCE DAILY
     Route: 047
     Dates: start: 201706, end: 20170617
  3. LOTEMAX [Suspect]
     Active Substance: LOTEPREDNOL ETABONATE
     Indication: GLAUCOMA
     Dosage: ONE DROP IN EACH EYE ONCE DAILY
     Route: 047
     Dates: start: 20170612, end: 201706
  4. REFRESH OPTIVE LUBRICANT EYE DROPS [Concomitant]
     Indication: DRY EYE
     Route: 047

REACTIONS (5)
  - Eye pruritus [Recovered/Resolved]
  - Off label use [Recovered/Resolved]
  - Eye irritation [Recovered/Resolved]
  - Headache [Recovered/Resolved]
  - Eye pain [Recovered/Resolved]

NARRATIVE: CASE EVENT DATE: 201706
